FAERS Safety Report 6004092-8 (Version None)
Quarter: 2008Q4

REPORT INFORMATION
  Report Type: 
  Country: None (occurrence: None)
  Receive Date: 20081215
  Receipt Date: 20081215
  Transmission Date: 20090506
  Serious: No
  Sender: FDA-Public Use
  Company Number: None

PATIENT
  Sex: Female
  Weight: 122.4712 kg

DRUGS (1)
  1. RISPERIDONE [Suspect]
     Indication: SCHIZOPHRENIA
     Dosage: 1 MG ONCE DAILY ORAL
     Route: 048
     Dates: end: 20080801

REACTIONS (5)
  - FEELING ABNORMAL [None]
  - IMPULSIVE BEHAVIOUR [None]
  - POOR QUALITY SLEEP [None]
  - PRODUCT QUALITY ISSUE [None]
  - THINKING ABNORMAL [None]
